FAERS Safety Report 25948039 (Version 1)
Quarter: 2025Q4

REPORT INFORMATION
  Report Type: Spontaneous
  Country: JP (occurrence: JP)
  Receive Date: 20251022
  Receipt Date: 20251022
  Transmission Date: 20260117
  Serious: Yes (Other)
  Sender: RANBAXY
  Company Number: JP-SUN PHARMACEUTICAL INDUSTRIES LTD-2025RR-532753

PATIENT
  Age: 79 Year
  Sex: Male

DRUGS (5)
  1. WARFARIN [Interacting]
     Active Substance: WARFARIN
     Indication: Thrombosis prophylaxis
     Dosage: 3 TO 4 MG/DAY
     Route: 065
  2. DABIGATRAN ETEXILATE [Suspect]
     Active Substance: DABIGATRAN ETEXILATE
     Indication: Thrombosis prophylaxis
     Dosage: 110 MILLIGRAM, BID
  3. DABIGATRAN ETEXILATE [Suspect]
     Active Substance: DABIGATRAN ETEXILATE
     Dosage: 75 MILLIGRAM, BID, AT 9:00 AM AND 9:00 PM
  4. TS-1 [Interacting]
     Active Substance: GIMERACIL\OTERACIL POTASSIUM\TEGAFUR
     Indication: Gastric cancer stage IV
     Dosage: 120 MG/DAY (80 MG/M^2 ) OF S-1 ON DAYS 1 TO 21
     Route: 065
  5. CISPLATIN [Concomitant]
     Active Substance: CISPLATIN
     Indication: Gastric cancer stage IV
     Dosage: UNK
     Route: 065

REACTIONS (3)
  - Prothrombin time ratio increased [Unknown]
  - Product use issue [Unknown]
  - Drug interaction [Unknown]
